FAERS Safety Report 5093975-1 (Version None)
Quarter: 2006Q3

REPORT INFORMATION
  Report Type: 
  Country: None (occurrence: None)
  Receive Date: 20060829
  Receipt Date: 20060829
  Transmission Date: 20061208
  Serious: Yes (Hospitalization)
  Sender: FDA-Public Use
  Company Number: None

PATIENT
  Sex: Male
  Weight: 74 kg

DRUGS (1)
  1. GLEEVEC [Suspect]
     Dosage: 800 MG
     Dates: start: 20060624

REACTIONS (2)
  - ANAEMIA [None]
  - RECURRENT CANCER [None]
